FAERS Safety Report 8759279 (Version 2)
Quarter: 2015Q2

REPORT INFORMATION
  Report Type: Report from Study
  Country: US (occurrence: US)
  Receive Date: 20120829
  Receipt Date: 20150630
  Transmission Date: 20150821
  Serious: Yes (Death, Hospitalization)
  Sender: FDA-Public Use
  Company Number: US-ROCHE-1101873

PATIENT
  Age: 75 Year
  Sex: Male

DRUGS (46)
  1. AVASTIN [Suspect]
     Active Substance: BEVACIZUMAB
     Route: 042
     Dates: start: 20051129
  2. DECADRON [Concomitant]
     Active Substance: DEXAMETHASONE
     Route: 065
     Dates: start: 20051101
  3. DECADRON [Concomitant]
     Active Substance: DEXAMETHASONE
     Route: 065
     Dates: start: 20051213
  4. MAGNESIUM SULFATE. [Concomitant]
     Active Substance: MAGNESIUM SULFATE
     Route: 065
  5. AVASTIN [Suspect]
     Active Substance: BEVACIZUMAB
     Route: 042
  6. AVASTIN [Suspect]
     Active Substance: BEVACIZUMAB
     Route: 042
     Dates: start: 20060307
  7. AVASTIN [Suspect]
     Active Substance: BEVACIZUMAB
     Route: 042
     Dates: start: 20051213
  8. DECADRON [Concomitant]
     Active Substance: DEXAMETHASONE
     Route: 065
     Dates: start: 20060110
  9. ANZEMET [Concomitant]
     Active Substance: DOLASETRON MESYLATE
     Route: 042
     Dates: start: 20060207
  10. AVASTIN [Suspect]
     Active Substance: BEVACIZUMAB
     Route: 042
  11. DECADRON [Concomitant]
     Active Substance: DEXAMETHASONE
     Route: 065
     Dates: start: 20051227
  12. DILAUDID [Concomitant]
     Active Substance: HYDROMORPHONE HYDROCHLORIDE
     Route: 042
  13. PREDNISONE. [Concomitant]
     Active Substance: PREDNISONE
  14. DARVOCET [Concomitant]
     Active Substance: ACETAMINOPHEN\PROPOXYPHENE HYDROCHLORIDE
  15. ANZEMET [Concomitant]
     Active Substance: DOLASETRON MESYLATE
     Route: 065
     Dates: start: 20051018
  16. ANZEMET [Concomitant]
     Active Substance: DOLASETRON MESYLATE
     Route: 065
     Dates: start: 20051115
  17. ANZEMET [Concomitant]
     Active Substance: DOLASETRON MESYLATE
     Route: 065
     Dates: start: 20060110
  18. MAGNESIUM OXIDE. [Concomitant]
     Active Substance: MAGNESIUM OXIDE
     Route: 048
  19. TARCEVA [Suspect]
     Active Substance: ERLOTINIB HYDROCHLORIDE
     Route: 048
  20. AVASTIN [Suspect]
     Active Substance: BEVACIZUMAB
     Route: 042
     Dates: start: 20060404
  21. AVASTIN [Suspect]
     Active Substance: BEVACIZUMAB
     Route: 042
     Dates: start: 20051018
  22. DILAUDID [Concomitant]
     Active Substance: HYDROMORPHONE HYDROCHLORIDE
     Route: 042
  23. RESTORIL [Concomitant]
     Active Substance: TEMAZEPAM
     Route: 048
  24. ANZEMET [Concomitant]
     Active Substance: DOLASETRON MESYLATE
     Route: 065
     Dates: start: 20051101
  25. ANZEMET [Concomitant]
     Active Substance: DOLASETRON MESYLATE
     Route: 065
     Dates: start: 20051227
  26. TARCEVA [Suspect]
     Active Substance: ERLOTINIB HYDROCHLORIDE
     Indication: RENAL CANCER
     Route: 048
  27. AVASTIN [Suspect]
     Active Substance: BEVACIZUMAB
     Route: 042
     Dates: start: 20051115
  28. AVASTIN [Suspect]
     Active Substance: BEVACIZUMAB
     Route: 042
     Dates: start: 20060110
  29. ZETIA [Concomitant]
     Active Substance: EZETIMIBE
  30. DECADRON [Concomitant]
     Active Substance: DEXAMETHASONE
     Route: 065
     Dates: start: 20051115
  31. XANAX [Concomitant]
     Active Substance: ALPRAZOLAM
     Route: 048
  32. PRILOSEC [Concomitant]
     Active Substance: OMEPRAZOLE MAGNESIUM
  33. AVASTIN [Suspect]
     Active Substance: BEVACIZUMAB
     Indication: RENAL CANCER
     Route: 042
     Dates: start: 20050624
  34. DECADRON [Concomitant]
     Active Substance: DEXAMETHASONE
     Route: 065
     Dates: start: 20051129
  35. CIPRO [Concomitant]
     Active Substance: CIPROFLOXACIN HYDROCHLORIDE
  36. AVASTIN [Suspect]
     Active Substance: BEVACIZUMAB
     Route: 042
     Dates: start: 20060124
  37. AVASTIN [Suspect]
     Active Substance: BEVACIZUMAB
     Route: 042
     Dates: start: 20051101
  38. AVASTIN [Suspect]
     Active Substance: BEVACIZUMAB
     Route: 042
     Dates: start: 20051227
  39. DECADRON [Concomitant]
     Active Substance: DEXAMETHASONE
     Route: 042
     Dates: start: 20060121
  40. DECADRON [Concomitant]
     Active Substance: DEXAMETHASONE
     Route: 042
     Dates: start: 20060207
  41. ANZEMET [Concomitant]
     Active Substance: DOLASETRON MESYLATE
     Route: 065
     Dates: start: 20051213
  42. AVASTIN [Suspect]
     Active Substance: BEVACIZUMAB
     Route: 042
     Dates: start: 20060207
  43. BENADRYL [Concomitant]
     Active Substance: DIPHENHYDRAMINE HYDROCHLORIDE
  44. DECADRON [Concomitant]
     Active Substance: DEXAMETHASONE
     Route: 042
     Dates: start: 20051018
  45. ANZEMET [Concomitant]
     Active Substance: DOLASETRON MESYLATE
     Route: 042
     Dates: start: 20060124
  46. ANZEMET [Concomitant]
     Active Substance: DOLASETRON MESYLATE
     Route: 065
     Dates: start: 20051129

REACTIONS (33)
  - Gait disturbance [Unknown]
  - Hypoacusis [Unknown]
  - Decreased appetite [Unknown]
  - Weight decreased [Unknown]
  - Fatigue [Unknown]
  - Chest pain [Unknown]
  - Dyspnoea [Unknown]
  - Death [Fatal]
  - Ataxia [Unknown]
  - Fall [Unknown]
  - Headache [Unknown]
  - Hypomagnesaemia [Unknown]
  - Off label use [Unknown]
  - Asthenia [Unknown]
  - Dyspnoea exertional [Unknown]
  - Abdominal pain [Unknown]
  - Pyrexia [Unknown]
  - Malaise [Unknown]
  - Contusion [Unknown]
  - Skin ulcer [Unknown]
  - Joint stiffness [Unknown]
  - Arthralgia [Unknown]
  - Constipation [Unknown]
  - Spinal cord compression [Unknown]
  - Confusional state [Unknown]
  - Oedema [Unknown]
  - Rash [Unknown]
  - Amnesia [Unknown]
  - Peripheral ischaemia [Unknown]
  - Haemorrhage [Unknown]
  - Unevaluable event [Unknown]
  - Wheezing [Unknown]
  - Cough [Unknown]

NARRATIVE: CASE EVENT DATE: 20060807
